FAERS Safety Report 16129024 (Version 1)
Quarter: 2019Q1

REPORT INFORMATION
  Report Type: Spontaneous
  Country: IN (occurrence: IN)
  Receive Date: 20190328
  Receipt Date: 20190328
  Transmission Date: 20190418
  Serious: Yes (Other)
  Sender: FDA-Public Use
  Company Number: IN-JNJFOC-20190333266

PATIENT
  Age: 19 Year
  Sex: Female

DRUGS (2)
  1. KETOCONAZOLE. [Suspect]
     Active Substance: KETOCONAZOLE
     Indication: PITUITARY-DEPENDENT CUSHING^S SYNDROME
     Dosage: 100 MG TWICE DAILY
     Route: 048
     Dates: start: 201805
  2. KETOCONAZOLE. [Suspect]
     Active Substance: KETOCONAZOLE
     Indication: PITUITARY-DEPENDENT CUSHING^S SYNDROME
     Route: 048
     Dates: start: 201802, end: 201805

REACTIONS (5)
  - Papilloedema [Recovering/Resolving]
  - Off label use [Unknown]
  - VIth nerve paralysis [Recovering/Resolving]
  - Idiopathic intracranial hypertension [Recovering/Resolving]
  - Product use in unapproved indication [Unknown]

NARRATIVE: CASE EVENT DATE: 2018
